FAERS Safety Report 8187749-2 (Version None)
Quarter: 2012Q1

REPORT INFORMATION
  Report Type: 
  Country: None (occurrence: None)
  Receive Date: 20120302
  Receipt Date: 20120225
  Transmission Date: 20120608
  Serious: Yes (Other)
  Sender: FDA-Public Use
  Company Number: ADR-2012-00463

PATIENT

DRUGS (1)
  1. LIORESAL [Suspect]
     Dosage: 800 MCG/DAY

REACTIONS (2)
  - STAPHYLOCOCCAL INFECTION [None]
  - ERYTHEMA [None]
